FAERS Safety Report 5235212-0 (Version None)
Quarter: 2007Q1

REPORT INFORMATION
  Report Type: 
  Country: None (occurrence: None)
  Receive Date: 20070207
  Receipt Date: 20070207
  Transmission Date: 20070707
  Serious: Yes (Other)
  Sender: FDA-Public Use
  Company Number: None

PATIENT
  Age: 84 Year
  Sex: Male
  Weight: 81.6475 kg

DRUGS (1)
  1. FLOMAX [Suspect]
     Dosage: .4 MG PO DAILY
     Route: 048
     Dates: end: 20070118

REACTIONS (2)
  - CATARACT OPERATION COMPLICATION [None]
  - MIOSIS [None]
